FAERS Safety Report 4502391-X (Version None)
Quarter: 2004Q4

REPORT INFORMATION
  Report Type: 
  Country: None (occurrence: None)
  Receive Date: 20041110
  Receipt Date: 20041025
  Transmission Date: 20050328
  Serious: Yes (Hospitalization)
  Sender: FDA-Public Use
  Company Number: T04-GER-07295-01

PATIENT
  Age: 43 Year
  Sex: Male

DRUGS (12)
  1. CIPRAMIL (CITALOPRAM HYDROBROMIDE) [Suspect]
     Dosage: 60 MG QD PO
     Route: 048
     Dates: start: 20030125, end: 20030304
  2. EDRONAX (REBOXETINE) [Suspect]
     Dosage: 4 MG QD PO
     Route: 048
     Dates: start: 20030124, end: 20030225
  3. ZYPREXA [Suspect]
     Dosage: 20 MG QD PO
     Route: 048
     Dates: start: 20030115, end: 20030217
  4. ZYPREXA [Suspect]
     Dosage: 10 MG, QD, PO
     Route: 048
     Dates: start: 20030218, end: 20030224
  5. ZYPREXA [Suspect]
     Dosage: 5 MG QD PO
     Route: 048
     Dates: start: 20030225, end: 20030312
  6. ZYPREXA [Suspect]
     Dosage: 2.5 MG QD
     Dates: start: 20030313
  7. LOPRESSOR [Concomitant]
  8. TRIARESE [Concomitant]
  9. CELEBREX [Concomitant]
  10. XIMOVAN (ZOPICLONE) [Concomitant]
  11. VENLAFAXINE HCL [Concomitant]
  12. ERGENYL CHRONO [Concomitant]

REACTIONS (2)
  - DRUG INTERACTION [None]
  - EJACULATION DISORDER [None]
